FAERS Safety Report 9147686 (Version 1)
Quarter: 2013Q1

REPORT INFORMATION
  Report Type: Spontaneous
  Country: FR (occurrence: FR)
  Receive Date: 20130307
  Receipt Date: 20130307
  Transmission Date: 20140127
  Serious: Yes (Hospitalization, Other)
  Sender: FDA-Public Use
  Company Number: FR-BAYER-2013-026776

PATIENT
  Age: 71 Year
  Sex: Male

DRUGS (3)
  1. GLUCOR [Suspect]
     Indication: TYPE 2 DIABETES MELLITUS
     Dosage: 300 MG, QD
     Route: 048
     Dates: start: 19990529, end: 19990702
  2. DAONIL [Suspect]
     Indication: TYPE 2 DIABETES MELLITUS
     Dosage: 15 MG, QD
     Route: 048
     Dates: start: 19990629, end: 19990702
  3. LAROXYL [Suspect]
     Indication: PRODUCT USED FOR UNKNOWN INDICATION
     Dosage: 50 MG, QD
     Route: 048
     Dates: start: 19990101, end: 19990702

REACTIONS (1)
  - Agranulocytosis [Recovered/Resolved]
